FAERS Safety Report 19883176 (Version 1)
Quarter: 2021Q3

REPORT INFORMATION
  Report Type: Spontaneous
  Country: US (occurrence: US)
  Receive Date: 20210926
  Receipt Date: 20210926
  Transmission Date: 20211014
  Serious: No
  Sender: FDA-Public Use
  Company Number: US-ELI_LILLY_AND_COMPANY-US202109009578

PATIENT
  Sex: Male

DRUGS (2)
  1. CIALIS [Suspect]
     Active Substance: TADALAFIL
     Indication: ERECTILE DYSFUNCTION
     Dosage: 5 MG, UNKNOWN
     Route: 048
     Dates: start: 2019
  2. CIALIS [Suspect]
     Active Substance: TADALAFIL
     Indication: ERECTILE DYSFUNCTION
     Dosage: 10 MG, PRN (AS NEEDED)
     Route: 048
     Dates: start: 2019

REACTIONS (6)
  - Dry mouth [Unknown]
  - Back pain [Unknown]
  - Sleep disorder due to general medical condition, insomnia type [Unknown]
  - Discomfort [Unknown]
  - Abdominal discomfort [Unknown]
  - Restlessness [Unknown]
